FAERS Safety Report 10626101 (Version 1)
Quarter: 2014Q4

REPORT INFORMATION
  Report Type: Spontaneous
  Country: FR (occurrence: FR)
  Receive Date: 20141204
  Receipt Date: 20141204
  Transmission Date: 20150529
  Serious: Yes (Other)
  Sender: FDA-Public Use
  Company Number: FR-PFIZER INC-2014327010

PATIENT
  Age: 7 Year
  Sex: Female

DRUGS (3)
  1. SPORANOX [Concomitant]
     Active Substance: ITRACONAZOLE\SODIUM CHLORIDE
  2. VFEND [Suspect]
     Active Substance: VORICONAZOLE
     Dosage: UNK
     Route: 048
     Dates: start: 20121112, end: 20130415
  3. VFEND [Suspect]
     Active Substance: VORICONAZOLE
     Dosage: UNK
     Route: 048
     Dates: start: 20130922, end: 20140604

REACTIONS (2)
  - Lentigo [Recovered/Resolved with Sequelae]
  - Photosensitivity reaction [Recovered/Resolved with Sequelae]

NARRATIVE: CASE EVENT DATE: 2013
